FAERS Safety Report 6768516-0 (Version None)
Quarter: 2010Q2

REPORT INFORMATION
  Report Type: 
  Country: None (occurrence: None)
  Receive Date: 20100614
  Receipt Date: 20100602
  Transmission Date: 20101027
  Serious: Yes (Life-Threatening, Other)
  Sender: FDA-Public Use
  Company Number: JP-PFIZER INC-2010044870

PATIENT
  Age: 62 Year
  Sex: Female
  Weight: 49 kg

DRUGS (6)
  1. SUNITINIB MALATE [Suspect]
     Indication: RENAL CELL CARCINOMA
     Dosage: 50 MG, 1X/DAY
     Route: 048
     Dates: start: 20090401, end: 20090417
  2. FENTANYL [Suspect]
  3. AREDIA [Suspect]
  4. NOVAMIN [Concomitant]
     Route: 048
  5. OXYCONTIN [Concomitant]
     Route: 048
  6. MAG-LAX [Concomitant]
     Route: 048

REACTIONS (7)
  - CANCER PAIN [None]
  - GENERAL PHYSICAL HEALTH DETERIORATION [None]
  - HYPERCALCAEMIA [None]
  - MALIGNANT NEOPLASM PROGRESSION [None]
  - PLATELET COUNT DECREASED [None]
  - PLEURAL EFFUSION [None]
  - RENAL CELL CARCINOMA [None]
